FAERS Safety Report 10419169 (Version 1)
Quarter: 2014Q3

REPORT INFORMATION
  Report Type: Spontaneous
  Country: US (occurrence: US)
  Receive Date: 20140829
  Receipt Date: 20140829
  Transmission Date: 20150326
  Serious: No
  Sender: FDA-Public Use
  Company Number: US-ELI_LILLY_AND_COMPANY-US201408000956

PATIENT
  Sex: Male

DRUGS (2)
  1. NOVOLIN 30R                        /00806401/ [Concomitant]
     Route: 065
  2. HUMALOG [Suspect]
     Active Substance: INSULIN LISPRO
     Indication: TYPE 2 DIABETES MELLITUS
     Dosage: UNK UNK, PRN BEFORE LUNCH
     Route: 065
     Dates: start: 201406

REACTIONS (2)
  - Umbilical hernia [Unknown]
  - Visual acuity reduced [Unknown]
